FAERS Safety Report 9833327 (Version 1)
Quarter: 2014Q1

REPORT INFORMATION
  Report Type: Spontaneous
  Country: US (occurrence: US)
  Receive Date: 20140121
  Receipt Date: 20140121
  Transmission Date: 20141002
  Serious: Yes (Hospitalization)
  Sender: FDA-Public Use
  Company Number: US-GILEAD-2014-0092663

PATIENT
  Age: 64 Year
  Sex: Female

DRUGS (7)
  1. LETAIRIS [Suspect]
     Indication: PRODUCT USED FOR UNKNOWN INDICATION
     Dosage: 5 MG, QD
     Route: 048
     Dates: start: 20130213
  2. PHENYTOIN [Concomitant]
  3. AMLODIPINE [Concomitant]
  4. FUROSEMIDE [Concomitant]
  5. POTASSIUM [Concomitant]
  6. CARVEDILOL [Concomitant]
  7. LISINOPRIL [Concomitant]

REACTIONS (1)
  - Unevaluable event [Unknown]
